FAERS Safety Report 6727646-X (Version None)
Quarter: 2010Q2

REPORT INFORMATION
  Report Type: 
  Country: None (occurrence: None)
  Receive Date: 20100517
  Receipt Date: 20100510
  Transmission Date: 20101027
  Serious: Yes (Life-Threatening, Hospitalization, Other)
  Sender: FDA-Public Use
  Company Number: PHHY2010JP18977

PATIENT
  Sex: Male

DRUGS (12)
  1. RASILEZ [Suspect]
     Indication: HYPERTENSION
     Dosage: 150 MG DAILY
     Route: 048
     Dates: end: 20100320
  2. RASILEZ [Suspect]
     Route: 048
  3. MICARDIS [Suspect]
     Dosage: 40 MG, UNK
     Route: 048
     Dates: end: 20100320
  4. MICARDIS [Suspect]
     Dosage: UNK
     Route: 048
     Dates: start: 20100325
  5. NATRIX [Concomitant]
     Indication: HYPERTENSION
     Dosage: 1 MG
     Route: 048
     Dates: end: 20100320
  6. AROTINOLOL HYDROCHLORIDE [Concomitant]
     Indication: HYPERTENSION
     Dosage: 20 MG
     Route: 048
  7. AROTINOLOL HYDROCHLORIDE [Concomitant]
     Dosage: UNK
     Dates: start: 20100325
  8. AMLODIN [Concomitant]
     Indication: HYPERTENSION
     Dosage: 10 MG
     Route: 048
  9. AMLODIN [Concomitant]
     Dosage: UNK
     Dates: start: 20100325
  10. ATELEC [Concomitant]
     Indication: HYPERTENSION
     Dosage: 10 MG
     Route: 048
     Dates: end: 20100320
  11. ZYLORIC [Concomitant]
     Indication: HYPERURICAEMIA
     Dosage: 100 MG
     Route: 048
  12. ZYLORIC [Concomitant]
     Dosage: UNK
     Dates: start: 20100325

REACTIONS (11)
  - ATRIOVENTRICULAR BLOCK COMPLETE [None]
  - BLOOD GLUCOSE INCREASED [None]
  - BRADYCARDIA [None]
  - HEPATIC CONGESTION [None]
  - HEPATIC FUNCTION ABNORMAL [None]
  - HYPERKALAEMIA [None]
  - ISCHAEMIC HEPATITIS [None]
  - LOSS OF CONSCIOUSNESS [None]
  - NEPHROGENIC ANAEMIA [None]
  - RENAL FAILURE CHRONIC [None]
  - RENAL FUNCTION TEST ABNORMAL [None]
